FAERS Safety Report 8446821-X (Version None)
Quarter: 2012Q2

REPORT INFORMATION
  Report Type: 
  Country: None (occurrence: None)
  Receive Date: 20120619
  Receipt Date: 20090611
  Transmission Date: 20120825
  Serious: No
  Sender: FDA-Public Use
  Company Number: 2009BI018350

PATIENT
  Age: 29 Year
  Sex: Male

DRUGS (3)
  1. BENADRYL [Concomitant]
     Indication: PREMEDICATION
     Dates: start: 20090603
  2. BENADRYL [Concomitant]
     Dates: start: 20090701
  3. TYSABRI [Suspect]
     Indication: MULTIPLE SCLEROSIS
     Route: 042
     Dates: start: 20090506

REACTIONS (5)
  - URTICARIA [None]
  - PHARYNGEAL OEDEMA [None]
  - PRURITUS [None]
  - NAUSEA [None]
  - HYPERSENSITIVITY [None]
